FAERS Safety Report 8047083 (Version 4)
Quarter: 2013Q4

REPORT INFORMATION
  Report Type: Spontaneous
  Country: IT (occurrence: None)
  Receive Date: 20110708
  Receipt Date: 20131224
  Transmission Date: 20140711
  Serious: Yes (Hospitalization)
  Sender: FDA-Public Use
  Company Number: JPI-P-015557

PATIENT
  Age: 54 Year
  Sex: Female

DRUGS (4)
  1. XYREM [Suspect]
     Indication: CATAPLEXY
     Route: 048
     Dates: start: 20090425
  2. XYREM [Suspect]
     Indication: NARCOLEPSY
     Route: 048
     Dates: start: 20090425
  3. VENLAFAXINE (VENLAFAXINE) [Concomitant]
  4. PROVIGIL (MODAFINIL) [Concomitant]

REACTIONS (1)
  - Breast cancer [None]
